FAERS Safety Report 6639320-9 (Version None)
Quarter: 2010Q1

REPORT INFORMATION
  Report Type: 
  Country: None (occurrence: None)
  Receive Date: 20100315
  Receipt Date: 20100225
  Transmission Date: 20100710
  Serious: Yes (Death)
  Sender: FDA-Public Use
  Company Number: 2010VX000082

PATIENT
  Age: 29 Year
  Sex: Male

DRUGS (10)
  1. DIASTAT [Suspect]
     Indication: DRUG USE FOR UNKNOWN INDICATION
  2. BENZODIAZEPINE [Suspect]
     Indication: DRUG USE FOR UNKNOWN INDICATION
  3. FLUOXETINE [Suspect]
     Indication: DRUG USE FOR UNKNOWN INDICATION
  4. VENLAFAXINE [Suspect]
     Indication: DRUG USE FOR UNKNOWN INDICATION
  5. MONOAMINE OXIDASE INHIBITORS (TRANYLCYPROMISE) [Suspect]
     Indication: DRUG USE FOR UNKNOWN INDICATION
  6. TRYPTOPHAN [Suspect]
     Indication: DRUG USE FOR UNKNOWN INDICATION
  7. LAMOTRIGINE [Suspect]
     Indication: DRUG USE FOR UNKNOWN INDICATION
  8. LAMOTRIGINE [Concomitant]
  9. TRYPTOPHAN [Concomitant]
  10. TRANYLCYPROMISE [Concomitant]

REACTIONS (7)
  - BLOOD URINE PRESENT [None]
  - ELECTROCARDIOGRAM T WAVE PEAKED [None]
  - HAEMODIALYSIS [None]
  - HYPOTENSION [None]
  - OVERDOSE [None]
  - TACHYCARDIA [None]
  - UNRESPONSIVE TO STIMULI [None]
